FAERS Safety Report 16889400 (Version 1)
Quarter: 2019Q4

REPORT INFORMATION
  Report Type: Spontaneous
  Country: US (occurrence: US)
  Receive Date: 20191007
  Receipt Date: 20191007
  Transmission Date: 20200122
  Serious: No
  Sender: FDA-Public Use
  Company Number: US-JNJFOC-20190925718

PATIENT
  Sex: Female

DRUGS (2)
  1. SUDAFED [Concomitant]
     Active Substance: PSEUDOEPHEDRINE HYDROCHLORIDE
     Indication: NASAL DECONGESTION THERAPY
     Route: 065
  2. SUDAFED 24 HOUR [Suspect]
     Active Substance: PSEUDOEPHEDRINE HYDROCHLORIDE
     Indication: NASAL DECONGESTION THERAPY
     Route: 065

REACTIONS (2)
  - Insomnia [Unknown]
  - Pruritus [Not Recovered/Not Resolved]
